FAERS Safety Report 21922640 (Version 1)
Quarter: 2023Q1

REPORT INFORMATION
  Report Type: Spontaneous
  Country: SE (occurrence: SE)
  Receive Date: 20230128
  Receipt Date: 20230128
  Transmission Date: 20230418
  Serious: Yes (Other)
  Sender: FDA-Public Use
  Company Number: None

PATIENT
  Age: 70 Year
  Sex: Female

DRUGS (3)
  1. VANCOMYCIN [Suspect]
     Active Substance: VANCOMYCIN
     Indication: Abscess
     Dates: start: 20220624, end: 20220629
  2. LINEZOLID [Suspect]
     Active Substance: LINEZOLID
     Indication: Abscess
     Dates: start: 20220624
  3. MEROPENEM [Concomitant]
     Active Substance: MEROPENEM
     Dates: start: 20220624, end: 20220706

REACTIONS (6)
  - Vomiting [Recovering/Resolving]
  - Alopecia [Recovering/Resolving]
  - Dysgeusia [Recovering/Resolving]
  - Infusion site thrombosis [Recovering/Resolving]
  - Nausea [Recovering/Resolving]
  - Fungal infection [Recovering/Resolving]

NARRATIVE: CASE EVENT DATE: 20220625
